FAERS Safety Report 8103440-2 (Version None)
Quarter: 2012Q1

REPORT INFORMATION
  Report Type: 
  Country: None (occurrence: None)
  Receive Date: 20120201
  Receipt Date: 20120127
  Transmission Date: 20120608
  Serious: Yes (Death)
  Sender: FDA-Public Use
  Company Number: US-ROCHE-1035044

PATIENT
  Sex: Female

DRUGS (4)
  1. PREDNISONE TAB [Suspect]
     Indication: LYMPHOMA
     Dates: start: 20120113
  2. RITUXAN [Suspect]
     Indication: LYMPHOMA
     Dates: start: 20120113
  3. CYCLOPHOSPHAMIDE [Suspect]
     Indication: LYMPHOMA
     Dates: start: 20120113
  4. VINCRISTINE [Suspect]
     Indication: LYMPHOMA
     Dates: start: 20120113

REACTIONS (1)
  - DEATH [None]
